FAERS Safety Report 20582405 (Version 1)
Quarter: 2022Q1

REPORT INFORMATION
  Report Type: Spontaneous
  Country: US (occurrence: None)
  Receive Date: 20220311
  Receipt Date: 20220311
  Transmission Date: 20220423
  Serious: Yes (Life-Threatening, Disabling, Other)
  Sender: FDA-Public Use
  Company Number: None

PATIENT
  Age: 47 Year
  Sex: Male
  Weight: 67.5 kg

DRUGS (6)
  1. INVEGA SUSTENNA [Suspect]
     Active Substance: PALIPERIDONE PALMITATE
     Indication: Schizoaffective disorder
     Route: 030
     Dates: start: 20190628, end: 20190705
  2. VYVANSE [Concomitant]
     Active Substance: LISDEXAMFETAMINE DIMESYLATE
  3. ZENZEDI [Concomitant]
     Active Substance: DEXTROAMPHETAMINE SULFATE
  4. VALIUM [Concomitant]
     Active Substance: DIAZEPAM
  5. ROPINIROLE [Concomitant]
     Active Substance: ROPINIROLE
  6. SELEGILINE [Concomitant]
     Active Substance: SELEGILINE

REACTIONS (4)
  - Gynaecomastia [None]
  - Restless legs syndrome [None]
  - Attention deficit hyperactivity disorder [None]
  - Parkinsonism [None]

NARRATIVE: CASE EVENT DATE: 20190628
